FAERS Safety Report 9045108 (Version 1)
Quarter: 2013Q1

REPORT INFORMATION
  Report Type: Report from Study
  Country: US (occurrence: US)
  Receive Date: 20130130
  Receipt Date: 20130130
  Transmission Date: 20140127
  Serious: No
  Sender: FDA-Public Use
  Company Number: US-ABBOTT-12P-163-0969144-00

PATIENT
  Age: 62 Year
  Sex: Female

DRUGS (8)
  1. HUMIRA 40 MG/0.8 ML PEN [Suspect]
     Indication: RHEUMATOID ARTHRITIS
     Dosage: INITIAL DOSE
     Dates: start: 20120809
  2. PENTASA [Concomitant]
     Indication: CROHN^S DISEASE
     Dosage: PILL
  3. NEXIUM [Concomitant]
     Indication: CROHN^S DISEASE
  4. HYDROXYCHLOROQUINE [Concomitant]
     Indication: FIBROMYALGIA
     Dosage: 200MG DAILY
  5. DIOVAN HCT [Concomitant]
     Indication: HYPERTENSION
     Dosage: 150-12.5MG DAILY
  6. ZOMIG [Concomitant]
     Indication: MIGRAINE
  7. TRAZODONE [Concomitant]
     Indication: INSOMNIA
     Dosage: EVERY NIGHT
  8. HYDROCODONE [Concomitant]
     Indication: ARTHRALGIA
     Dosage: 5/500MG 1 TABLET AS NEEDED

REACTIONS (4)
  - Fear of injection [Recovered/Resolved]
  - Injection site pain [Unknown]
  - Injection site pain [Unknown]
  - Injection site haemorrhage [Unknown]
